FAERS Safety Report 20740688 (Version 6)
Quarter: 2024Q1

REPORT INFORMATION
  Report Type: Spontaneous
  Country: US (occurrence: US)
  Receive Date: 20220422
  Receipt Date: 20240328
  Transmission Date: 20240409
  Serious: No
  Sender: FDA-Public Use
  Company Number: US-PFIZER INC-202101259819

PATIENT
  Age: 41 Year
  Sex: Female

DRUGS (1)
  1. INLYTA [Suspect]
     Active Substance: AXITINIB
     Indication: Renal cancer
     Dosage: 4 TABLETS EVERY 12 HOURS BY ORAL ROUTE DAILY/TAKE 4 TABLETS EVERY 12HOURS BY ORAL ROUTE FOR 30 DAYS
     Route: 048

REACTIONS (1)
  - Weight decreased [Unknown]
